FAERS Safety Report 4314725-X (Version None)
Quarter: 2004Q1

REPORT INFORMATION
  Report Type: 
  Country: None (occurrence: None)
  Receive Date: 20040308
  Receipt Date: 20040224
  Transmission Date: 20041129
  Serious: Yes (Life-Threatening)
  Sender: FDA-Public Use
  Company Number: 2003JP007328

PATIENT
  Age: 70 Year
  Sex: Female
  Weight: 53 kg

DRUGS (11)
  1. PROGRAF [Suspect]
     Indication: MYASTHENIA GRAVIS
     Dosage: 3 MG,  UID/QD, ORAL
     Route: 048
     Dates: start: 20031009, end: 20031015
  2. PRDONINE (PREDNISOLONE)TABLET [Suspect]
     Dosage: 40 MG,QOD, ORAL
     Route: 048
     Dates: start: 20031003, end: 20031023
  3. PRDONINE (PREDNISOLONE)TABLET [Suspect]
     Dosage: 40 MG,QOD, ORAL
     Route: 048
     Dates: start: 20031024, end: 20031101
  4. PLETAL [Concomitant]
  5. ACTONEL [Concomitant]
  6. TOYOFAROL (ALFACALCIDOL) [Concomitant]
  7. LANSOPRAZOLE [Concomitant]
  8. MUCOSTA (REBAMIPIDE) [Concomitant]
  9. LORCAM (LORNOXICAM) [Concomitant]
  10. SELBEX  (TEPRENONE) [Concomitant]
  11. DEXAMETHASONE [Concomitant]

REACTIONS (9)
  - ANGINA PECTORIS [None]
  - CONDITION AGGRAVATED [None]
  - DYSPNOEA [None]
  - FIBRIN D DIMER INCREASED [None]
  - MYASTHENIA GRAVIS [None]
  - PO2 DECREASED [None]
  - PULMONARY EMBOLISM [None]
  - THROMBIN-ANTITHROMBIN III COMPLEX INCREASED [None]
  - THROMBOTIC MICROANGIOPATHY [None]
